FAERS Safety Report 5585380-6 (Version None)
Quarter: 2008Q1

REPORT INFORMATION
  Report Type: 
  Country: None (occurrence: None)
  Receive Date: 20080109
  Receipt Date: 20080104
  Transmission Date: 20080703
  Serious: Yes (Death, Hospitalization)
  Sender: FDA-Public Use
  Company Number: US-JNJFOC-20060401378

PATIENT
  Sex: Female
  Weight: 72.5 kg

DRUGS (15)
  1. YONDELIS [Suspect]
     Indication: OVARIAN CANCER
     Route: 042
  2. DOXIL [Suspect]
     Indication: OVARIAN CANCER
     Route: 042
  3. OXYCODONE [Concomitant]
     Route: 048
  4. SYNTHROID [Concomitant]
     Route: 048
  5. DILAUDID [Concomitant]
     Route: 048
  6. COMPAZINE [Concomitant]
  7. ATIVAN [Concomitant]
  8. ZOFRAN [Concomitant]
  9. DAPTOMYCIN [Concomitant]
     Indication: INFECTION
     Route: 042
  10. FLAGYL [Concomitant]
     Indication: INFECTION
     Route: 042
  11. MICAFUNGIN [Concomitant]
     Indication: INFECTION
     Route: 042
  12. ZOSYN [Concomitant]
     Indication: INFECTION
     Route: 042
  13. MEROPENEM [Concomitant]
     Indication: INFECTION
     Route: 042
  14. DILAUDID [Concomitant]
     Route: 042
  15. DILAUDID [Concomitant]
     Route: 042

REACTIONS (3)
  - OVARIAN CANCER [None]
  - PULMONARY EMBOLISM [None]
  - RESPIRATORY FAILURE [None]
